FAERS Safety Report 6508174-3 (Version None)
Quarter: 2009Q4

REPORT INFORMATION
  Report Type: 
  Country: None (occurrence: None)
  Receive Date: 20091221
  Receipt Date: 20081209
  Transmission Date: 20100525
  Serious: No
  Sender: FDA-Public Use
  Company Number: US-ASTRAZENECA-2008UW27370

PATIENT
  Sex: Male

DRUGS (3)
  1. CRESTOR [Suspect]
     Route: 048
     Dates: start: 20080701
  2. CRESTOR [Suspect]
     Route: 048
     Dates: start: 20080701, end: 20080801
  3. NORVASC [Concomitant]
     Dosage: 5 MG

REACTIONS (5)
  - ABDOMINAL PAIN UPPER [None]
  - BURNING SENSATION [None]
  - FLATULENCE [None]
  - MUSCULAR WEAKNESS [None]
  - MYALGIA [None]
